FAERS Safety Report 8415183-6 (Version None)
Quarter: 2012Q2

REPORT INFORMATION
  Report Type: 
  Country: None (occurrence: None)
  Receive Date: 20120606
  Receipt Date: 20120531
  Transmission Date: 20120825
  Serious: No
  Sender: FDA-Public Use
  Company Number: US-PFIZER INC-2012132609

PATIENT
  Sex: Female
  Weight: 67.12 kg

DRUGS (3)
  1. METFORMIN HCL [Suspect]
     Indication: DIABETES MELLITUS
     Dosage: 300 MG, TWO TIMES AS DAY AS NEEDED
  2. HUMULIN N [Suspect]
     Indication: DIABETES MELLITUS
     Dosage: 40MG IN THE MORNING AND 30MG IN THE NIGHT
  3. GLIPIZIDE [Suspect]
     Indication: DIABETES MELLITUS
     Dosage: 10 MG, TWO TIMES AS DAY AS NEEDED

REACTIONS (1)
  - NAIL DISCOLOURATION [None]
